FAERS Safety Report 20313178 (Version 2)
Quarter: 2022Q1

REPORT INFORMATION
  Report Type: Spontaneous
  Country: RO (occurrence: RO)
  Receive Date: 20220109
  Receipt Date: 20220114
  Transmission Date: 20220423
  Serious: Yes (Other)
  Sender: FDA-Public Use
  Company Number: RO-ASTELLAS-2021US050239

PATIENT
  Age: 73 Year
  Sex: Male

DRUGS (6)
  1. TAMSULOSIN HYDROCHLORIDE [Suspect]
     Active Substance: TAMSULOSIN HYDROCHLORIDE
     Indication: Prostatic adenoma
     Dosage: 0.4 MG, QD
     Route: 048
     Dates: start: 2012
  2. AVODART [Concomitant]
     Active Substance: DUTASTERIDE
     Indication: Prostatic adenoma
     Dosage: 1 DF, QD
     Route: 065
     Dates: start: 2012
  3. NEBIVOLOL [Concomitant]
     Active Substance: NEBIVOLOL
     Indication: Hypertension
     Dosage: UNK
     Route: 065
  4. INDAPAMIDE [Concomitant]
     Active Substance: INDAPAMIDE
     Indication: Hypertension
     Dosage: UNK
     Route: 065
  5. AMLODIPINE BESYLATE\OLMESARTAN MEDOXOMIL [Concomitant]
     Active Substance: AMLODIPINE BESYLATE\OLMESARTAN MEDOXOMIL
     Indication: Hypertension
     Dosage: UNK
  6. ROSUVASTATIN CALCIUM [Concomitant]
     Active Substance: ROSUVASTATIN CALCIUM
     Indication: Hypertension
     Dosage: UNK
     Route: 016

REACTIONS (2)
  - Erectile dysfunction [Not Recovered/Not Resolved]
  - Ejaculation failure [Not Recovered/Not Resolved]
